FAERS Safety Report 4888390-7 (Version None)
Quarter: 2006Q1

REPORT INFORMATION
  Report Type: 
  Country: None (occurrence: None)
  Receive Date: 20060119
  Receipt Date: 20060119
  Transmission Date: 20060701
  Serious: Yes (Hospitalization)
  Sender: FDA-Public Use
  Company Number: None

PATIENT
  Age: 71 Year
  Sex: Male
  Weight: 94.8018 kg

DRUGS (2)
  1. WARFARIN [Suspect]
     Indication: PULMONARY EMBOLISM
     Dosage: 7.5 MG QD
  2. TRIMETHOPRIM + SULFAMETHOXAZOLE [Suspect]
     Indication: INFECTION
     Dosage: 1 BID PO
     Route: 048

REACTIONS (6)
  - BLOOD URINE PRESENT [None]
  - COUGH [None]
  - FAECES DISCOLOURED [None]
  - HYPOXIA [None]
  - INTERNATIONAL NORMALISED RATIO INCREASED [None]
  - SPUTUM DISCOLOURED [None]
